FAERS Safety Report 14075109 (Version 6)
Quarter: 2018Q1

REPORT INFORMATION
  Report Type: Report from Study
  Country: US (occurrence: US)
  Receive Date: 20171011
  Receipt Date: 20180316
  Transmission Date: 20180508
  Serious: Yes (Hospitalization)
  Sender: FDA-Public Use
  Company Number: US-ACTELION-A-NJ2017-147815

PATIENT
  Age: 71 Year
  Sex: Female

DRUGS (15)
  1. METFORMIN [Concomitant]
     Active Substance: METFORMIN HYDROCHLORIDE
  2. ASPIRIN. [Concomitant]
     Active Substance: ASPIRIN
  3. LOSARTAN. [Concomitant]
     Active Substance: LOSARTAN
  4. ORENITRAM [Suspect]
     Active Substance: TREPROSTINIL
     Indication: PRODUCT USED FOR UNKNOWN INDICATION
     Dosage: 8.25 MG, TID
     Route: 065
     Dates: start: 20170701
  5. HYDROCHLOROTHIAZIDE. [Concomitant]
     Active Substance: HYDROCHLOROTHIAZIDE
  6. FERROUS SULFATE. [Concomitant]
     Active Substance: FERROUS SULFATE
  7. ATENOLOL. [Concomitant]
     Active Substance: ATENOLOL
  8. LANTUS [Concomitant]
     Active Substance: INSULIN GLARGINE
  9. ORENITRAM [Suspect]
     Active Substance: TREPROSTINIL
     Dosage: 7.75 MG, TID
     Route: 065
  10. ORENITRAM [Suspect]
     Active Substance: TREPROSTINIL
     Dosage: 7.25 MG, TID
     Route: 065
  11. SIMVASTATIN. [Concomitant]
     Active Substance: SIMVASTATIN
  12. OXYGEN. [Concomitant]
     Active Substance: OXYGEN
  13. MULTIVITAMIN [Concomitant]
     Active Substance: VITAMINS
  14. OPSUMIT [Suspect]
     Active Substance: MACITENTAN
     Indication: PULMONARY ARTERIAL HYPERTENSION
     Dosage: 10 MG, QD
     Route: 048
     Dates: start: 20160126
  15. REMODULIN [Concomitant]
     Active Substance: TREPROSTINIL

REACTIONS (11)
  - Diarrhoea [Unknown]
  - Oedema peripheral [Unknown]
  - Pulmonary hypertension [Unknown]
  - Weight decreased [Unknown]
  - Vomiting [Unknown]
  - Transient ischaemic attack [Unknown]
  - Pruritus [Recovered/Resolved]
  - Decreased appetite [Unknown]
  - Pollakiuria [Unknown]
  - Nausea [Unknown]
  - Dyspnoea [Recovered/Resolved]

NARRATIVE: CASE EVENT DATE: 20171003
